FAERS Safety Report 7715089-1 (Version None)
Quarter: 2011Q3

REPORT INFORMATION
  Report Type: 
  Country: None (occurrence: None)
  Receive Date: 20110829
  Receipt Date: 20110815
  Transmission Date: 20111222
  Serious: Yes (Hospitalization, Other)
  Sender: FDA-Public Use
  Company Number: PHHY2011AR64442

PATIENT
  Sex: Female

DRUGS (4)
  1. ATENOLOL [Concomitant]
  2. ALPLAX [Concomitant]
  3. PELMEC [Concomitant]
  4. DIOVAN [Suspect]
     Indication: BLOOD PRESSURE
     Dosage: 1 DF, DAILY

REACTIONS (5)
  - BLOOD PRESSURE DIASTOLIC INCREASED [None]
  - COMPUTERISED TOMOGRAM ABNORMAL [None]
  - INFARCTION [None]
  - CEREBROVASCULAR ACCIDENT [None]
  - HEART RATE INCREASED [None]
